FAERS Safety Report 20383045 (Version 2)
Quarter: 2022Q1

REPORT INFORMATION
  Report Type: Other
  Country: IE (occurrence: IE)
  Receive Date: 20220127
  Receipt Date: 20220217
  Transmission Date: 20220423
  Serious: Yes (Other)
  Sender: FDA-Public Use
  Company Number: IE-SERVIER-S21001821

PATIENT

DRUGS (8)
  1. ONCASPAR [Suspect]
     Active Substance: PEGASPARGASE
     Indication: B precursor type acute leukaemia
     Dosage: PER THE UKALL 2011 PROTOCOL, REGIMEN A
     Route: 065
     Dates: start: 2013, end: 2016
  2. DEXAMETHASONE PHOSPHATE [Suspect]
     Active Substance: DEXAMETHASONE PHOSPHATE
     Indication: B precursor type acute leukaemia
     Dosage: PER THE UKALL 2011 PROTOCOL, REGIMEN A
     Route: 065
     Dates: start: 2013, end: 2016
  3. MERCAPTOPURINE [Suspect]
     Active Substance: MERCAPTOPURINE
     Indication: B precursor type acute leukaemia
     Dosage: PER THE UKALL 2011 PROTOCOL, REGIMEN A
     Route: 065
     Dates: start: 2013, end: 2016
  4. CYTARABINE [Suspect]
     Active Substance: CYTARABINE
     Indication: B precursor type acute leukaemia
     Dosage: PER THE UKALL 2011 PROTOCOL, REGIMEN A
     Route: 065
     Dates: start: 2013, end: 2016
  5. DOXORUBICIN HYDROCHLORIDE [Suspect]
     Active Substance: DOXORUBICIN HYDROCHLORIDE
     Indication: B precursor type acute leukaemia
     Dosage: PER THE UKALL 2011 PROTOCOL, REGIMEN A
     Route: 065
     Dates: start: 2013, end: 2016
  6. VINCRISTINE SULFATE [Suspect]
     Active Substance: VINCRISTINE SULFATE
     Indication: B precursor type acute leukaemia
     Dosage: PER THE UKALL 2011 PROTOCOL, REGIMEN A
     Route: 065
     Dates: start: 2013, end: 2016
  7. CYCLOPHOSPHAMIDE [Suspect]
     Active Substance: CYCLOPHOSPHAMIDE
     Indication: B precursor type acute leukaemia
     Dosage: PER THE UKALL 2011 PROTOCOL, REGIMEN A
     Route: 065
     Dates: start: 2013, end: 2016
  8. VINCRISTINE SULFATE [Suspect]
     Active Substance: VINCRISTINE SULFATE
     Indication: B precursor type acute leukaemia
     Dosage: PER THE UKALL 2011 PROTOCOL, REGIMEN A
     Route: 065
     Dates: start: 2013, end: 2016

REACTIONS (1)
  - Acral lentiginous melanoma [Unknown]

NARRATIVE: CASE EVENT DATE: 20160101
